FAERS Safety Report 24348865 (Version 3)
Quarter: 2024Q4

REPORT INFORMATION
  Report Type: Spontaneous
  Country: AR (occurrence: AR)
  Receive Date: 20240923
  Receipt Date: 20241202
  Transmission Date: 20250114
  Serious: Yes (Hospitalization, Other)
  Sender: SANDOZ
  Company Number: AR-SANDOZ-SDZ2024AR081665

PATIENT
  Sex: Male
  Weight: 37.5 kg

DRUGS (3)
  1. OMNITROPE [Suspect]
     Active Substance: SOMATROPIN
     Indication: Growth hormone deficiency
     Dosage: UNK, QD, 0.6 MG FROM MONDAY TO FRIDAY 0.4 MG SATURDAY AND SUNDAY;7 DAYS A WEEK
     Route: 058
     Dates: start: 20230314
  2. OMNITROPE [Suspect]
     Active Substance: SOMATROPIN
     Indication: Growth retardation
  3. HYDROCORTISONE [Concomitant]
     Active Substance: HYDROCORTISONE
     Indication: Hypopituitarism
     Dosage: UNK, HALF TABLET IN THE MORNING, HALF TABLET IN THE AFTERNOON AND A QUARTER OF TABLET AT NIGHT.
     Route: 065

REACTIONS (9)
  - General physical health deterioration [Unknown]
  - Bradycardia [Unknown]
  - Somnolence [Unknown]
  - Varicella [Unknown]
  - Headache [Unknown]
  - Fatigue [Unknown]
  - Hydrocephalus [Unknown]
  - Brain neoplasm [Unknown]
  - Procedural vomiting [Unknown]

NARRATIVE: CASE EVENT DATE: 20230101
